FAERS Safety Report 13840285 (Version 1)
Quarter: 2017Q3

REPORT INFORMATION
  Report Type: Spontaneous
  Country: KR (occurrence: KR)
  Receive Date: 20170807
  Receipt Date: 20170807
  Transmission Date: 20171127
  Serious: Yes (Other)
  Sender: FDA-Public Use
  Company Number: KR-ELI_LILLY_AND_COMPANY-KR201708001563

PATIENT
  Age: 61 Year
  Sex: Male

DRUGS (1)
  1. ERBITUX [Suspect]
     Active Substance: CETUXIMAB
     Indication: COLON CANCER
     Dosage: 100 MG, UNKNOWN
     Route: 065
     Dates: start: 20160726, end: 20160726

REACTIONS (4)
  - Blood pressure fluctuation [Recovered/Resolved]
  - Pruritus [Recovered/Resolved]
  - Oxygen saturation decreased [Recovered/Resolved]
  - Urticaria [Recovered/Resolved]

NARRATIVE: CASE EVENT DATE: 20160726
